FAERS Safety Report 12085331 (Version 3)
Quarter: 2016Q1

REPORT INFORMATION
  Report Type: Spontaneous
  Country: US (occurrence: US)
  Receive Date: 20160217
  Receipt Date: 20160329
  Transmission Date: 20160526
  Serious: Yes (Other)
  Sender: FDA-Public Use
  Company Number: US-SUPERNUS PHARMACEUTICALS, INC.-2016SUP00011

PATIENT
  Age: 68 Year
  Sex: Female
  Weight: 63.49 kg

DRUGS (9)
  1. CRESTOR [Concomitant]
     Active Substance: ROSUVASTATIN CALCIUM
  2. VITAMIN D3 [Concomitant]
     Active Substance: CHOLECALCIFEROL
  3. OXTELLAR XR [Suspect]
     Active Substance: OXCARBAZEPINE
     Indication: TRIGEMINAL NEURALGIA
     Dosage: 600 MG, 1X/DAY
     Dates: start: 201512, end: 20160126
  4. GABAPENTIN. [Suspect]
     Active Substance: GABAPENTIN
     Dosage: 300 MG, 2X/DAY
     Dates: end: 201601
  5. GABAPENTIN. [Suspect]
     Active Substance: GABAPENTIN
     Dosage: 300 UNK, 1X/DAY
     Dates: start: 201601
  6. OXTELLAR XR [Suspect]
     Active Substance: OXCARBAZEPINE
     Indication: TRIGEMINAL NEURALGIA
     Dosage: 300 MG 1X/DAY
     Dates: start: 20151112, end: 201512
  7. OXTELLAR XR [Suspect]
     Active Substance: OXCARBAZEPINE
     Dosage: 300 MG, 1X/DAY
     Dates: start: 20151218, end: 20160126
  8. OXTELLAR XR [Suspect]
     Active Substance: OXCARBAZEPINE
     Dosage: 1200 UNK, UNK
     Route: 048
     Dates: start: 20160127
  9. UNSPECIFIED THYROID MEDICATION [Concomitant]
     Active Substance: UNSPECIFIED INGREDIENT

REACTIONS (10)
  - Orthostatic hypotension [Unknown]
  - Drug level below therapeutic [Recovered/Resolved]
  - Dehydration [Unknown]
  - Blood arsenic increased [Unknown]
  - Pulmonary hypertension [Unknown]
  - Syncope [Recovered/Resolved]
  - Drug ineffective for unapproved indication [Not Recovered/Not Resolved]
  - Abdominal pain upper [Recovered/Resolved]
  - Blood lead increased [Unknown]
  - Mitral valve incompetence [Unknown]

NARRATIVE: CASE EVENT DATE: 20151112
